FAERS Safety Report 19645791 (Version 1)
Quarter: 2021Q3

REPORT INFORMATION
  Report Type: Report from Study
  Country: IT (occurrence: IT)
  Receive Date: 20210802
  Receipt Date: 20210802
  Transmission Date: 20211014
  Serious: Yes (Other)
  Sender: FDA-Public Use
  Company Number: IT-TEVA-2021-IT-1937799

PATIENT
  Age: 93 Year
  Sex: Male

DRUGS (4)
  1. MONOKET [Concomitant]
     Active Substance: ISOSORBIDE MONONITRATE
     Dosage: 3 DF
  2. ZANEDIP 10 MG COMPRESSE RIVESTITE CON FILM [Concomitant]
     Active Substance: LERCANIDIPINE HYDROCHLORIDE
  3. OLPREZIDE 20 MG/12,5 MG COMPRESSE RIVESTITE CON FILM [Concomitant]
     Active Substance: HYDROCHLOROTHIAZIDE\OLMESARTAN MEDOXOMIL
  4. RYTMONORM [Suspect]
     Active Substance: PROPAFENONE
     Indication: ATRIAL FIBRILLATION
     Dosage: 1 DF
     Route: 048
     Dates: start: 20210101, end: 20210625

REACTIONS (1)
  - Presyncope [Recovering/Resolving]

NARRATIVE: CASE EVENT DATE: 20210625
